FAERS Safety Report 7382357-5 (Version None)
Quarter: 2011Q1

REPORT INFORMATION
  Report Type: 
  Country: None (occurrence: None)
  Receive Date: 20110329
  Receipt Date: 20110301
  Transmission Date: 20110831
  Serious: Yes (Death, Other)
  Sender: FDA-Public Use
  Company Number: US-BAYER-200939275NA

PATIENT
  Sex: Male

DRUGS (6)
  1. IRON [IRON] [Concomitant]
     Route: 042
  2. ARANESP [Concomitant]
     Indication: ANAEMIA
  3. TRASYLOL [Suspect]
     Indication: PRODUCT USED FOR UNKNOWN INDICATION
     Route: 042
     Dates: start: 20051229
  4. BLOOD TRANSFUSION, AUXILIARY PRODUCTS [Concomitant]
     Dosage: UNK
     Dates: start: 20081201
  5. BLOOD TRANSFUSION, AUXILIARY PRODUCTS [Concomitant]
     Dosage: UNK
     Dates: start: 20081001
  6. EPOGEN [Concomitant]
     Indication: ANAEMIA

REACTIONS (6)
  - RENAL FAILURE [None]
  - DEATH [None]
  - PAIN [None]
  - EMOTIONAL DISTRESS [None]
  - INJURY [None]
  - ANXIETY [None]
